FAERS Safety Report 8924375 (Version 1)
Quarter: 2012Q4

REPORT INFORMATION
  Report Type: 
  Country: US (occurrence: US)
  Receive Date: 20121126
  Receipt Date: 20121126
  Transmission Date: 20130627
  Serious: No
  Sender: FDA-Public Use
  Company Number: US-MYLANLABS-2012S1005300

PATIENT
  Age: 53 Year
  Sex: Male
  Weight: 83.92 kg

DRUGS (23)
  1. CLONAZEPAM [Suspect]
     Dates: start: 20110712, end: 20111003
  2. CLONAZEPAM [Suspect]
     Indication: INSOMNIA
     Dates: start: 201107, end: 201109
  3. CLONAZEPAM [Suspect]
     Indication: ARTHRITIS
     Dates: start: 201107, end: 201109
  4. CLONAZEPAM [Suspect]
     Indication: EXOSTOSIS
     Dates: start: 201107, end: 201109
  5. CLONAZEPAM [Suspect]
     Indication: MUSCLE SPASMS
     Dates: start: 201107, end: 201109
  6. CLONAZEPAM [Suspect]
     Indication: INSOMNIA
     Dates: start: 201201, end: 201201
  7. CLONAZEPAM [Suspect]
     Indication: ARTHRITIS
     Dates: start: 201201, end: 201201
  8. CLONAZEPAM [Suspect]
     Indication: EXOSTOSIS
     Dates: start: 201201, end: 201201
  9. CLONAZEPAM [Suspect]
     Indication: MUSCLE SPASMS
     Dates: start: 201201, end: 201201
  10. CLONAZEPAM [Suspect]
     Indication: INSOMNIA
     Dates: start: 201202, end: 201202
  11. CLONAZEPAM [Suspect]
     Indication: ARTHRITIS
     Dates: start: 201202, end: 201202
  12. CLONAZEPAM TABLETS, USP [Suspect]
     Indication: EXOSTOSIS
     Dates: start: 201202, end: 201202
  13. CLONAZEPAM [Suspect]
     Indication: MUSCLE SPASMS
     Dates: start: 201202, end: 201202
  14. MELOXICAM [Concomitant]
     Dates: start: 20110712
  15. ZOLPIDEM [Concomitant]
  16. CARISOPRODOL [Concomitant]
     Dates: start: 20110712
  17. ACETAMINOPHEN W/OXYCODONE [Concomitant]
     Dosage: PRN
  18. CARVEDILOL [Concomitant]
     Dates: start: 20110826
  19. SERTRALINE [Concomitant]
  20. METOPROLOL [Concomitant]
     Dates: start: 20110712, end: 20111123
  21. BACTRIM DS [Concomitant]
     Dates: start: 20110811
  22. CEPHALEXIN [Concomitant]
     Dates: start: 20110826
  23. PERCOCET [Concomitant]
     Dates: start: 20110907

REACTIONS (21)
  - Dyspnoea [Recovered/Resolved]
  - Somnolence [Recovered/Resolved]
  - Memory impairment [Not Recovered/Not Resolved]
  - Vision blurred [Recovered/Resolved]
  - Dizziness [Unknown]
  - Thinking abnormal [Recovered/Resolved]
  - Anxiety [Unknown]
  - Coordination abnormal [Recovered/Resolved]
  - Balance disorder [Recovered/Resolved]
  - Myalgia [Recovered/Resolved]
  - Arthralgia [Recovered/Resolved]
  - Pollakiuria [Recovered/Resolved]
  - Face oedema [Recovered/Resolved]
  - Dysphonia [Recovered/Resolved]
  - Paranoia [Unknown]
  - Anger [Unknown]
  - Speech disorder [Unknown]
  - Cognitive disorder [Unknown]
  - Dysarthria [Unknown]
  - Mental impairment [Unknown]
  - Abnormal behaviour [Unknown]
